FAERS Safety Report 6125625-7 (Version None)
Quarter: 2009Q1

REPORT INFORMATION
  Report Type: 
  Country: None (occurrence: None)
  Receive Date: 20090318
  Receipt Date: 20090304
  Transmission Date: 20090719
  Serious: Yes (Other)
  Sender: FDA-Public Use
  Company Number: 220002M09FRA

PATIENT
  Sex: Male

DRUGS (1)
  1. SAIZEN [Suspect]
     Indication: BLOOD GROWTH HORMONE DECREASED
     Dosage: 0.23 MG/KG, 1 IN 1 WEEKS

REACTIONS (2)
  - TYPE 1 DIABETES MELLITUS [None]
  - WEIGHT DECREASED [None]
